FAERS Safety Report 7245493-X (Version None)
Quarter: 2011Q1

REPORT INFORMATION
  Report Type: 
  Country: None (occurrence: None)
  Receive Date: 20110126
  Receipt Date: 20110112
  Transmission Date: 20110831
  Serious: Yes (Other)
  Sender: FDA-Public Use
  Company Number: US-ELI_LILLY_AND_COMPANY-US201011001469

PATIENT
  Sex: Male
  Weight: 55.329 kg

DRUGS (15)
  1. LACTULOSE [Concomitant]
  2. MULTIVITAMIN [Concomitant]
  3. SENNA [Concomitant]
  4. VALPROIC ACID [Concomitant]
  5. REGLAN [Concomitant]
  6. FERROUS SULFATE TAB [Concomitant]
  7. MEGACE [Concomitant]
  8. DULCOLAX [Concomitant]
  9. KLONOPIN [Concomitant]
  10. PHENOBARBITAL [Concomitant]
     Dates: start: 20091201
  11. DILANTIN [Concomitant]
  12. TOPAMAX [Concomitant]
  13. FORTEO [Suspect]
     Indication: OSTEOPOROSIS
     Dosage: 20 UG, DAILY (1/D)
     Route: 058
     Dates: start: 20091226
  14. PRILOSEC [Concomitant]
  15. ZANTAC [Concomitant]

REACTIONS (1)
  - TIBIA FRACTURE [None]
